FAERS Safety Report 5993275-9 (Version None)
Quarter: 2008Q4

REPORT INFORMATION
  Report Type: 
  Country: None (occurrence: None)
  Receive Date: 20081212
  Receipt Date: 20080605
  Transmission Date: 20090506
  Serious: No
  Sender: FDA-Public Use
  Company Number: US-AMGEN-KDL284949

PATIENT
  Sex: Female

DRUGS (3)
  1. ENBREL [Suspect]
     Indication: RHEUMATOID ARTHRITIS
     Route: 058
     Dates: start: 20070206
  2. METHOTREXATE [Concomitant]
     Dates: start: 20060929
  3. SULFASALAZINE [Concomitant]

REACTIONS (2)
  - FALL [None]
  - WRIST FRACTURE [None]
